FAERS Safety Report 25985267 (Version 1)
Quarter: 2025Q4

REPORT INFORMATION
  Report Type: Spontaneous
  Country: AU (occurrence: AU)
  Receive Date: 20251031
  Receipt Date: 20251031
  Transmission Date: 20260118
  Serious: Yes (Other)
  Sender: TEVA
  Company Number: AU-TEVA-VS-3387226

PATIENT
  Sex: Female

DRUGS (1)
  1. ANTABUSE [Suspect]
     Active Substance: DISULFIRAM
     Indication: Alcoholism
     Dosage: EVERY SECOND DAY, QOD
     Route: 065

REACTIONS (2)
  - Cyanosis [Unknown]
  - Off label use [Unknown]
